FAERS Safety Report 8828230 (Version 2)
Quarter: 2012Q4

REPORT INFORMATION
  Report Type: 
  Country: US (occurrence: US)
  Receive Date: 20121005
  Receipt Date: 20121119
  Transmission Date: 20130627
  Serious: No
  Sender: FDA-Public Use
  Company Number: US-PFIZER INC-2012244488

PATIENT
  Age: 91 Year
  Sex: Female
  Weight: 79.37 kg

DRUGS (3)
  1. LIPITOR [Suspect]
     Indication: BLOOD CHOLESTEROL ABNORMAL
     Dosage: UNK
     Route: 048
     Dates: end: 2012
  2. ATORVASTATIN CALCIUM [Suspect]
     Indication: BLOOD CHOLESTEROL ABNORMAL
     Dosage: UNK
     Route: 048
     Dates: start: 2012
  3. POTASSIUM [Concomitant]
     Dosage: UNK

REACTIONS (3)
  - Migraine [Unknown]
  - Therapeutic response unexpected [Unknown]
  - Migraine [Unknown]
